FAERS Safety Report 5982678-4 (Version None)
Quarter: 2008Q4

REPORT INFORMATION
  Report Type: 
  Country: None (occurrence: None)
  Receive Date: 20081208
  Receipt Date: 20081124
  Transmission Date: 20090506
  Serious: Yes (Death)
  Sender: FDA-Public Use
  Company Number: GB-NOVOPROD-279048

PATIENT
  Sex: Male
  Weight: 91.7 kg

DRUGS (2)
  1. LEVEMIR [Suspect]
     Indication: TYPE 1 DIABETES MELLITUS
     Dosage: 50 IU, QD
     Route: 058
     Dates: start: 20060601
  2. NOVORAPID PENFILL [Suspect]
     Indication: TYPE 1 DIABETES MELLITUS
     Dosage: 25-30, IU, TID
     Route: 058
     Dates: start: 20060601

REACTIONS (1)
  - DIABETIC KETOACIDOSIS [None]
